FAERS Safety Report 5532849-6 (Version None)
Quarter: 2007Q4

REPORT INFORMATION
  Report Type: 
  Country: None (occurrence: None)
  Receive Date: 20071130
  Receipt Date: 20071130
  Transmission Date: 20080405
  Serious: Yes (Other)
  Sender: FDA-Public Use
  Company Number: None

PATIENT
  Age: 15 Year
  Sex: Female
  Weight: 54.4316 kg

DRUGS (1)
  1. CLARITHROMYCIN [Suspect]
     Indication: TRACHEOBRONCHITIS MYCOPLASMAL
     Dosage: 500MG BID PO
     Route: 048
     Dates: start: 20071121, end: 20071128

REACTIONS (2)
  - AFFECT LABILITY [None]
  - DEPRESSION [None]
